FAERS Safety Report 25198622 (Version 1)
Quarter: 2025Q2

REPORT INFORMATION
  Report Type: Spontaneous
  Country: GB (occurrence: GB)
  Receive Date: 20250415
  Receipt Date: 20250415
  Transmission Date: 20250716
  Serious: Yes (Death, Other)
  Sender: SANOFI AVENTIS
  Company Number: GB-SA-2025SA106125

PATIENT
  Age: 62 Year
  Sex: Male
  Weight: 120 kg

DRUGS (4)
  1. DUPIXENT [Suspect]
     Active Substance: DUPILUMAB
     Indication: Dermatitis atopic
     Route: 058
     Dates: start: 20221005, end: 20250325
  2. OMEPRAZOLE [Concomitant]
     Active Substance: OMEPRAZOLE
     Indication: Helicobacter infection
     Dosage: 40 MG, BID
     Dates: start: 20230218, end: 20250325
  3. VITAMIN D [Concomitant]
     Active Substance: VITAMIN D NOS
     Indication: Vitamin D decreased
     Dosage: OD
     Dates: start: 202209, end: 20250323
  4. ACETAMINOPHEN\CODEINE PHOSPHATE [Concomitant]
     Active Substance: ACETAMINOPHEN\CODEINE PHOSPHATE
     Indication: Arthralgia
     Dates: start: 202301, end: 20250325

REACTIONS (6)
  - Alcoholic liver disease [Fatal]
  - Fall [Fatal]
  - Circulatory collapse [Fatal]
  - Confusional state [Fatal]
  - Hyponatraemia [Fatal]
  - Liver function test abnormal [Fatal]

NARRATIVE: CASE EVENT DATE: 20250315
